FAERS Safety Report 4568308-7 (Version None)
Quarter: 2005Q1

REPORT INFORMATION
  Report Type: 
  Country: None (occurrence: None)
  Receive Date: 20050202
  Receipt Date: 20050131
  Transmission Date: 20050727
  Serious: Yes (Hospitalization)
  Sender: FDA-Public Use
  Company Number: DE-GLAXOSMITHKLINE-D0045768A

PATIENT
  Age: 18 Year
  Sex: Male
  Weight: 54 kg

DRUGS (3)
  1. ELOBACT [Suspect]
     Dosage: 500MG THREE TIMES PER DAY
     Route: 048
     Dates: start: 20050111, end: 20050114
  2. TANTUM VERDE [Suspect]
     Route: 048
     Dates: start: 20050111, end: 20050114
  3. ACETAMINOPHEN [Suspect]
     Dosage: 500MG TWICE PER DAY
     Route: 048
     Dates: start: 20050111, end: 20050114

REACTIONS (1)
  - DRUG ERUPTION [None]
